FAERS Safety Report 15819314 (Version 2)
Quarter: 2019Q1

REPORT INFORMATION
  Report Type: Spontaneous
  Country: BR (occurrence: BR)
  Receive Date: 20190114
  Receipt Date: 20190208
  Transmission Date: 20190417
  Serious: Yes (Other)
  Sender: FDA-Public Use
  Company Number: BR-ROCHE-2241175

PATIENT
  Age: 61 Year
  Sex: Female
  Weight: 74 kg

DRUGS (7)
  1. HERCEPTIN [Suspect]
     Active Substance: TRASTUZUMAB
     Indication: INVASIVE DUCTAL BREAST CARCINOMA
     Dosage: (DAY 1, WITH INTERVAL OF 21 DAYS BETWEEN CYCLES)
     Route: 042
     Dates: start: 20181031
  2. RANITIDINE. [Concomitant]
     Active Substance: RANITIDINE
     Route: 042
  3. PERJETA [Suspect]
     Active Substance: PERTUZUMAB
     Indication: INVASIVE DUCTAL BREAST CARCINOMA
     Dosage: (DAY 1, WITH INTERVAL OF 21 DAYS BETWEEN CYCLES)
     Route: 042
     Dates: start: 20181031
  4. DIPHENHYDRAMINE. [Concomitant]
     Active Substance: DIPHENHYDRAMINE
     Route: 042
  5. DEXAMETHASONE. [Concomitant]
     Active Substance: DEXAMETHASONE
     Route: 042
  6. ONTAX [Suspect]
     Active Substance: PACLITAXEL
     Indication: INVASIVE DUCTAL BREAST CARCINOMA
     Dosage: (DAY 1, DAY 8 AND DAY 15, WITH INTERVAL OF 21 DAYS BETWEEN CYCLES)
     Route: 042
     Dates: start: 20181031
  7. LEVOTHYROXINE. [Concomitant]
     Active Substance: LEVOTHYROXINE
     Indication: PRODUCT USED FOR UNKNOWN INDICATION
     Route: 065

REACTIONS (1)
  - Mucosal inflammation [Recovered/Resolved]

NARRATIVE: CASE EVENT DATE: 20181120
